FAERS Safety Report 11333744 (Version 1)
Quarter: 2015Q3

REPORT INFORMATION
  Report Type: Spontaneous
  Country: US (occurrence: US)
  Receive Date: 20150803
  Receipt Date: 20150803
  Transmission Date: 20151125
  Serious: Yes (Hospitalization)
  Sender: FDA-Public Use
  Company Number: US-ELI_LILLY_AND_COMPANY-US200802004573

PATIENT
  Sex: Female
  Weight: 92.97 kg

DRUGS (3)
  1. ZYPREXA [Suspect]
     Active Substance: OLANZAPINE
     Dosage: 10 MG, UNK
     Dates: start: 20040624, end: 20040724
  2. ZYPREXA [Suspect]
     Active Substance: OLANZAPINE
     Indication: ANXIETY
     Dosage: 10 MG, UNK
     Dates: start: 20000417, end: 200012
  3. LITHIUM. [Concomitant]
     Active Substance: LITHIUM
     Dates: start: 20010821, end: 20060116

REACTIONS (2)
  - Diabetes mellitus [Not Recovered/Not Resolved]
  - Glucose urine present [Unknown]
